FAERS Safety Report 5937672-6 (Version None)
Quarter: 2008Q4

REPORT INFORMATION
  Report Type: 
  Country: None (occurrence: None)
  Receive Date: 20081031
  Receipt Date: 20080417
  Transmission Date: 20090506
  Serious: No
  Sender: FDA-Public Use
  Company Number: US-BAYER-200811781BCC

PATIENT
  Sex: Female

DRUGS (1)
  1. ALEVE SINUS + HEADACHE CAPLETS [Suspect]
     Indication: NASOPHARYNGITIS
     Route: 048

REACTIONS (1)
  - NASOPHARYNGITIS [None]
